FAERS Safety Report 7287495-3 (Version None)
Quarter: 2011Q1

REPORT INFORMATION
  Report Type: 
  Country: None (occurrence: None)
  Receive Date: 20110211
  Receipt Date: 20110204
  Transmission Date: 20110831
  Serious: Yes (Other)
  Sender: FDA-Public Use
  Company Number: US-BRISTOL-MYERS SQUIBB COMPANY-15531155

PATIENT
  Age: 56 Year
  Sex: Female

DRUGS (12)
  1. LEVETIRACETAM [Concomitant]
  2. CHOLESTYRAMINE [Concomitant]
  3. OXYCODONE HCL [Concomitant]
     Dosage: TAKEN AT NIGHT
  4. AMBIEN [Concomitant]
  5. METOPROLOL TARTRATE [Concomitant]
  6. AMLODIPINE BESYLATE [Concomitant]
  7. COUMADIN [Interacting]
     Dosage: AT NIGHT
     Dates: start: 19940101
  8. LIPITOR [Suspect]
  9. KLOR-CON M [Concomitant]
     Dosage: 1DF: 20 UNITS NOS
  10. SULFA [Interacting]
     Indication: URINARY TRACT INFECTION
  11. METAXALONE [Concomitant]
  12. ASPIRIN [Concomitant]
     Dosage: IN MORNING

REACTIONS (5)
  - URINARY TRACT INFECTION [None]
  - INTERNATIONAL NORMALISED RATIO INCREASED [None]
  - CEREBROVASCULAR ACCIDENT [None]
  - CHROMATURIA [None]
  - DRUG INTERACTION [None]
